FAERS Safety Report 4286790-X (Version None)
Quarter: 2004Q1

REPORT INFORMATION
  Report Type: 
  Country: None (occurrence: None)
  Receive Date: 20040206
  Receipt Date: 20040129
  Transmission Date: 20041129
  Serious: Yes (Hospitalization)
  Sender: FDA-Public Use
  Company Number: JP-ROCHE-357708

PATIENT
  Age: 53 Year
  Sex: Male

DRUGS (3)
  1. CELLCEPT [Suspect]
     Route: 048
     Dates: start: 20020815
  2. PROGRAF [Concomitant]
  3. STEROID [Concomitant]

REACTIONS (4)
  - APLASIA PURE RED CELL [None]
  - DISEASE RECURRENCE [None]
  - HEPATITIS C [None]
  - PANCYTOPENIA [None]
